FAERS Safety Report 18434853 (Version 1)
Quarter: 2020Q4

REPORT INFORMATION
  Report Type: Spontaneous
  Country: NL (occurrence: NL)
  Receive Date: 20201028
  Receipt Date: 20201028
  Transmission Date: 20210114
  Serious: Yes (Other)
  Sender: FDA-Public Use
  Company Number: NL-AUROBINDO-AUR-APL-2020-054309

PATIENT
  Age: 20 Year
  Sex: Male
  Weight: 100 kg

DRUGS (2)
  1. PAROXETIN FILM-COATED TABLET 20MG [Suspect]
     Active Substance: PAROXETINE
     Indication: BURNOUT SYNDROME
  2. PAROXETIN FILM-COATED TABLET 20MG [Suspect]
     Active Substance: PAROXETINE
     Indication: DEPRESSION
     Dosage: 1 X PER DAG 1 STUK
     Route: 065
     Dates: start: 201907, end: 20200901

REACTIONS (1)
  - Erectile dysfunction [Not Recovered/Not Resolved]

NARRATIVE: CASE EVENT DATE: 20200701
